FAERS Safety Report 7933962-6 (Version None)
Quarter: 2011Q4

REPORT INFORMATION
  Report Type: 
  Country: None (occurrence: None)
  Receive Date: 20111122
  Receipt Date: 20111114
  Transmission Date: 20120403
  Serious: Yes (Hospitalization, Disabling, Other)
  Sender: FDA-Public Use
  Company Number: DE-PFIZER INC-2011186039

PATIENT
  Age: 75 Year
  Sex: Female

DRUGS (5)
  1. SUTENT [Suspect]
     Indication: RENAL CELL CARCINOMA
     Dosage: DOSE ACCORDING TO PROTOCOL
     Dates: start: 20110809
  2. SIMVASTATIN [Concomitant]
     Dosage: 20 MG, UNK
  3. PANTOPRAZOLE SODIUM [Concomitant]
     Dosage: 40 MG, UNK
  4. LEVOTHYROXINE SODIUM [Concomitant]
     Dosage: 88 UG, UNK
  5. VOMEX [Concomitant]
     Dosage: AS NEEDED
     Dates: start: 20110805

REACTIONS (2)
  - CARDIAC FAILURE [None]
  - GUILLAIN-BARRE SYNDROME [None]
